FAERS Safety Report 9419532 (Version 1)
Quarter: 2013Q3

REPORT INFORMATION
  Report Type: Spontaneous
  Country: FR (occurrence: FR)
  Receive Date: 20130725
  Receipt Date: 20130725
  Transmission Date: 20140515
  Serious: Yes (Other)
  Sender: FDA-Public Use
  Company Number: FR-SANOFI-AVENTIS-2013SA072848

PATIENT
  Age: 76 Year
  Sex: Male

DRUGS (15)
  1. AMAREL [Suspect]
     Indication: DIABETES MELLITUS
     Route: 048
     Dates: end: 20130524
  2. JANUMET [Suspect]
     Indication: DIABETES MELLITUS
     Route: 048
     Dates: start: 201103, end: 20130524
  3. DELURSAN [Concomitant]
     Route: 048
  4. DUOPLAVIN [Concomitant]
     Route: 048
     Dates: start: 2012
  5. TARKA - SLOW RELEASE [Concomitant]
     Route: 048
     Dates: start: 201301
  6. AMLOR [Concomitant]
     Route: 048
     Dates: start: 20130128
  7. OLMESARTAN [Concomitant]
     Route: 048
     Dates: start: 20130514
  8. LASILIX [Concomitant]
     Route: 048
     Dates: start: 201303
  9. TAMSULOSIN [Concomitant]
     Dosage: THERAPY START DATE: 2010/2011
     Route: 048
  10. TADENAN [Concomitant]
     Route: 048
     Dates: start: 201103
  11. ART [Concomitant]
     Dosage: THERAPY START DATE: 2009/2010
     Route: 048
  12. XALATAN [Concomitant]
     Dates: start: 2010
  13. AZOPT [Concomitant]
     Dates: start: 2010
  14. DAFALGAN [Concomitant]
     Route: 048
  15. DICLOFENAC SODIUM [Concomitant]

REACTIONS (4)
  - Localised oedema [Unknown]
  - Dyspnoea [Unknown]
  - Hypoglycaemia [Recovered/Resolved]
  - Malaise [Recovered/Resolved]
